FAERS Safety Report 15602527 (Version 1)
Quarter: 2018Q4

REPORT INFORMATION
  Report Type: Spontaneous
  Country: CZ (occurrence: CZ)
  Receive Date: 20181109
  Receipt Date: 20181109
  Transmission Date: 20190205
  Serious: Yes (Other)
  Sender: FDA-Public Use
  Company Number: CZ-TEVA-2018-CZ-974737

PATIENT
  Sex: Male

DRUGS (1)
  1. TRAMABENE [Suspect]
     Active Substance: TRAMADOL
     Route: 048

REACTIONS (4)
  - Nervousness [Unknown]
  - Irritability [Unknown]
  - Libido decreased [Unknown]
  - Drug dependence [Unknown]
